FAERS Safety Report 9670992 (Version 1)
Quarter: 2013Q4

REPORT INFORMATION
  Report Type: Spontaneous
  Country: IT (occurrence: IT)
  Receive Date: 20131106
  Receipt Date: 20131106
  Transmission Date: 20140711
  Serious: Yes (Other)
  Sender: FDA-Public Use
  Company Number: IT-MYLANLABS-2013S1024030

PATIENT
  Age: 77 Year
  Sex: Male

DRUGS (1)
  1. EPINEPHRINE [Suspect]
     Indication: RESUSCITATION
     Dosage: 3MG TOTAL
     Route: 065

REACTIONS (1)
  - Stress cardiomyopathy [Recovered/Resolved]
